FAERS Safety Report 9220566 (Version 1)
Quarter: 2013Q2

REPORT INFORMATION
  Report Type: Spontaneous
  Country: GB (occurrence: GB)
  Receive Date: 20130409
  Receipt Date: 20130409
  Transmission Date: 20140414
  Serious: Yes (Disabling)
  Sender: FDA-Public Use
  Company Number: GB-TEVA-396331ISR

PATIENT
  Age: 1 Hour
  Sex: Female

DRUGS (1)
  1. VALPROIC ACID [Suspect]
     Indication: EPILEPSY
     Route: 064

REACTIONS (8)
  - Learning disability [Not Recovered/Not Resolved]
  - Asperger^s disorder [Not Recovered/Not Resolved]
  - Astigmatism [Not Recovered/Not Resolved]
  - Premature baby [Not Recovered/Not Resolved]
  - Hypotonia [Not Recovered/Not Resolved]
  - Muscular weakness [Not Recovered/Not Resolved]
  - Muscle tightness [Not Recovered/Not Resolved]
  - Posture abnormal [Not Recovered/Not Resolved]
